FAERS Safety Report 15298682 (Version 1)
Quarter: 2018Q3

REPORT INFORMATION
  Report Type: Spontaneous
  Country: US (occurrence: US)
  Receive Date: 20180820
  Receipt Date: 20180820
  Transmission Date: 20181010
  Serious: No
  Sender: FDA-Public Use
  Company Number: US-VIFOR (INTERNATIONAL) INC.-VIT-2018-08267

PATIENT
  Sex: Male

DRUGS (14)
  1. AMLODIPINE BESILATE [Concomitant]
     Active Substance: AMLODIPINE BESYLATE
  2. TRADJENTA [Concomitant]
     Active Substance: LINAGLIPTIN
  3. BENAZEPRIL HYDROCHLORIDE~~AMLODIPINE BESILATE [Concomitant]
  4. METOPROLOL TARTRATE. [Concomitant]
     Active Substance: METOPROLOL TARTRATE
  5. ULORIC [Concomitant]
     Active Substance: FEBUXOSTAT
  6. LISINOPRIL. [Concomitant]
     Active Substance: LISINOPRIL
  7. METOPROLOL SUCCINATE. [Concomitant]
     Active Substance: METOPROLOL SUCCINATE
  8. CLOPIDOGREL BISULFATE. [Concomitant]
     Active Substance: CLOPIDOGREL BISULFATE
  9. GLIPIZIDE. [Concomitant]
     Active Substance: GLIPIZIDE
  10. GLIPIZIDE. [Concomitant]
     Active Substance: GLIPIZIDE
  11. VELTASSA [Suspect]
     Active Substance: PATIROMER
     Indication: HYPERKALAEMIA
     Route: 048
     Dates: start: 20160310
  12. LEVEMIR [Concomitant]
     Active Substance: INSULIN DETEMIR
  13. ACARBOSE. [Concomitant]
     Active Substance: ACARBOSE
  14. WARFARIN SODIUM. [Concomitant]
     Active Substance: WARFARIN SODIUM

REACTIONS (2)
  - Off label use [Unknown]
  - Nausea [Unknown]
